FAERS Safety Report 6647918-7 (Version None)
Quarter: 2010Q1

REPORT INFORMATION
  Report Type: 
  Country: None (occurrence: None)
  Receive Date: 20100318
  Receipt Date: 20100302
  Transmission Date: 20100710
  Serious: Yes (Hospitalization)
  Sender: FDA-Public Use
  Company Number: APP201000122

PATIENT
  Age: 44 Year
  Sex: Male

DRUGS (1)
  1. ASTRAMORPH PF [Suspect]
     Indication: DRUG USE FOR UNKNOWN INDICATION
     Dosage: NTRA-ARTERIAL
     Route: 013

REACTIONS (6)
  - BLOOD PRESSURE SYSTOLIC INCREASED [None]
  - ERYTHEMA [None]
  - INJECTION SITE SCAR [None]
  - PAIN IN EXTREMITY [None]
  - PERIPHERAL EMBOLISM [None]
  - VASCULAR PSEUDOANEURYSM [None]
